FAERS Safety Report 18277777 (Version 2)
Quarter: 2020Q3

REPORT INFORMATION
  Report Type: Report from Study
  Country: None (occurrence: US)
  Receive Date: 20200917
  Receipt Date: 20200928
  Transmission Date: 20201103
  Serious: No
  Sender: FDA-Public Use
  Company Number: US-BIOVITRUM-2020US4964

PATIENT
  Age: 10 Year
  Sex: Male

DRUGS (4)
  1. KINERET [Suspect]
     Active Substance: ANAKINRA
     Indication: HAEMOPHAGOCYTIC LYMPHOHISTIOCYTOSIS
     Route: 058
     Dates: start: 20200909
  2. PREDNISONE. [Concomitant]
     Active Substance: PREDNISONE
  3. FAMOTIDINE. [Concomitant]
     Active Substance: FAMOTIDINE
  4. ASPIRIN. [Concomitant]
     Active Substance: ASPIRIN

REACTIONS (2)
  - Injection site pain [Unknown]
  - Off label use [Not Recovered/Not Resolved]

NARRATIVE: CASE EVENT DATE: 20200909
